FAERS Safety Report 23953549 (Version 1)
Quarter: 2024Q2

REPORT INFORMATION
  Report Type: Spontaneous
  Country: JP (occurrence: JP)
  Receive Date: 20240608
  Receipt Date: 20240608
  Transmission Date: 20240715
  Serious: Yes (Other)
  Sender: FDA-Public Use
  Company Number: JP-ABBVIE-5793897

PATIENT
  Age: 55 Year
  Sex: Female

DRUGS (2)
  1. BRIMONIDINE TARTRATE\TIMOLOL MALEATE [Suspect]
     Active Substance: BRIMONIDINE TARTRATE\TIMOLOL MALEATE
     Indication: Glaucoma
     Route: 047
     Dates: start: 20230731, end: 20230731
  2. OMIDENEPAG ISOPROPYL [Suspect]
     Active Substance: OMIDENEPAG ISOPROPYL
     Indication: Product used for unknown indication
     Dosage: OPHTHALMIC SOLUTION 0.002 PERCENT
     Route: 047

REACTIONS (4)
  - Respiratory disorder [Recovered/Resolved]
  - Anaphylactic reaction [Recovered/Resolved]
  - Oropharyngeal discomfort [Recovered/Resolved]
  - Cough [Recovered/Resolved]

NARRATIVE: CASE EVENT DATE: 20230731
